FAERS Safety Report 7636367-0 (Version None)
Quarter: 2011Q3

REPORT INFORMATION
  Report Type: 
  Country: None (occurrence: None)
  Receive Date: 20110726
  Receipt Date: 20110714
  Transmission Date: 20111222
  Serious: Yes (Hospitalization)
  Sender: FDA-Public Use
  Company Number: DE-GLAXOSMITHKLINE-B0732534A

PATIENT
  Sex: Female
  Weight: 92 kg

DRUGS (8)
  1. DOXORUBICIN HCL [Suspect]
     Indication: BREAST CANCER
     Dosage: 117.6MG EVERY 3 WEEKS
     Route: 042
     Dates: start: 20110531
  2. LAPATINIB [Suspect]
     Indication: BREAST CANCER
     Dosage: 1250MG PER DAY
     Route: 048
     Dates: start: 20110531
  3. LEVOTHYROXINE SODIUM [Concomitant]
     Indication: HYPOTHYROIDISM
     Dosage: 25MG PER DAY
     Route: 048
  4. FALITHROM [Concomitant]
     Route: 048
  5. TELMISARTAN [Concomitant]
     Indication: HYPERTENSION
     Dosage: 80MG PER DAY
     Route: 048
  6. METOPROLOL TARTRATE [Concomitant]
     Indication: HYPERTENSION
     Dosage: 200MG PER DAY
     Route: 048
  7. TAXOL [Suspect]
     Indication: BREAST CANCER
     Dosage: 343MG EVERY 3 WEEKS
     Route: 042
     Dates: start: 20110531
  8. HYDROCHLOROTHIAZIDE [Concomitant]
     Indication: HYPERTENSION
     Dosage: 12.5MG PER DAY
     Route: 048

REACTIONS (3)
  - PANCYTOPENIA [None]
  - RESPIRATORY TRACT INFECTION [None]
  - DIARRHOEA [None]
